FAERS Safety Report 8165235-3 (Version None)
Quarter: 2012Q1

REPORT INFORMATION
  Report Type: 
  Country: None (occurrence: None)
  Receive Date: 20120221
  Receipt Date: 20120106
  Transmission Date: 20120608
  Serious: Yes (Other)
  Sender: FDA-Public Use
  Company Number: COL_10763_2012

PATIENT
  Age: 59 Year
  Sex: Female

DRUGS (2)
  1. ASACOL [Concomitant]
  2. SOFTSOAP BODY WASH SHEA BUTTER [Suspect]
     Dosage: (1.5 FLUID OUNCES/ONCE/ TOPICAL)
     Route: 061
     Dates: start: 20120103, end: 20120103

REACTIONS (8)
  - LIP SWELLING [None]
  - TINNITUS [None]
  - DYSPHONIA [None]
  - URTICARIA [None]
  - UPPER AIRWAY OBSTRUCTION [None]
  - EYE DISCHARGE [None]
  - SWELLING FACE [None]
  - OCULAR HYPERAEMIA [None]
